FAERS Safety Report 13088953 (Version 3)
Quarter: 2017Q1

REPORT INFORMATION
  Report Type: Spontaneous
  Country: FR (occurrence: FR)
  Receive Date: 20170105
  Receipt Date: 20170214
  Transmission Date: 20170428
  Serious: Yes (Hospitalization)
  Sender: FDA-Public Use
  Company Number: FR-PFIZER INC-2016605151

PATIENT
  Age: 40 Year
  Sex: Male

DRUGS (9)
  1. CLAFORAN [Concomitant]
     Active Substance: CEFOTAXIME SODIUM
  2. FLAGYL [Concomitant]
     Active Substance: METRONIDAZOLE\METRONIDAZOLE HYDROCHLORIDE
  3. ALDACTONE [Suspect]
     Active Substance: SPIRONOLACTONE
     Indication: DIURETIC THERAPY
     Dosage: 25 MG, DAILY
     Route: 048
     Dates: start: 20161028, end: 20161111
  4. PREZISTA [Suspect]
     Active Substance: DARUNAVIR ETHANOLATE
     Indication: HIV INFECTION
     Dosage: 800 MG, 1X/DAY
     Route: 048
     Dates: start: 20161028, end: 20161111
  5. BACTRIM [Suspect]
     Active Substance: SULFAMETHOXAZOLE\TRIMETHOPRIM
     Indication: INFECTION PROPHYLAXIS
     Dosage: 1 DF, 1X/DAY
     Route: 048
     Dates: start: 20161028, end: 20161111
  6. TRUVADA [Suspect]
     Active Substance: EMTRICITABINE\TENOFOVIR DISOPROXIL FUMARATE
     Indication: HIV INFECTION
     Dosage: 200 MG / 245 MG 1 DF, 1X/DAY
     Route: 048
     Dates: start: 20161028, end: 20161111
  7. NORVIR [Suspect]
     Active Substance: RITONAVIR
     Indication: HIV INFECTION
     Dosage: 100 MG, 1X/DAY
     Route: 048
     Dates: start: 20161028, end: 20161111
  8. OFLOXACINE [Suspect]
     Active Substance: OFLOXACIN
     Indication: ANTIBIOTIC THERAPY
     Dosage: 200 MG, 2X/DAY
     Route: 048
     Dates: start: 20161101, end: 20161114
  9. LASILIX /00032601/ [Suspect]
     Active Substance: FUROSEMIDE
     Indication: DIURETIC THERAPY
     Dosage: 40 MG, 2X/DAY
     Route: 048
     Dates: start: 20161028, end: 20161111

REACTIONS (4)
  - Prerenal failure [Recovered/Resolved]
  - Renal failure [Recovered/Resolved]
  - Condition aggravated [Recovered/Resolved]
  - Renal tubular acidosis [Recovered/Resolved]

NARRATIVE: CASE EVENT DATE: 20161111
